FAERS Safety Report 6919915-5 (Version None)
Quarter: 2010Q3

REPORT INFORMATION
  Report Type: 
  Country: None (occurrence: None)
  Receive Date: 20100811
  Receipt Date: 20100809
  Transmission Date: 20110219
  Serious: Yes (Hospitalization, Disabling)
  Sender: FDA-Public Use
  Company Number: US-CEPHALON-2010004183

PATIENT
  Sex: Female

DRUGS (6)
  1. PROVIGIL [Suspect]
     Indication: NARCOLEPSY
     Route: 048
     Dates: start: 20090401, end: 20100101
  2. EFFEXOR [Concomitant]
     Indication: DEPRESSION
     Route: 048
     Dates: start: 20080101
  3. EFFEXOR [Concomitant]
     Indication: ANXIETY
  4. ABILIFY [Concomitant]
     Indication: DEPRESSION
     Route: 048
     Dates: start: 20080101
  5. ABILIFY [Concomitant]
     Indication: ANXIETY
  6. TRAZODONE HCL [Concomitant]
     Indication: DEPRESSION
     Route: 048
     Dates: start: 20040101

REACTIONS (3)
  - BACK INJURY [None]
  - DRUG INEFFECTIVE [None]
  - JOINT INJURY [None]
